FAERS Safety Report 9098996 (Version 2)
Quarter: 2013Q2

REPORT INFORMATION
  Report Type: Spontaneous
  Country: ES (occurrence: ES)
  Receive Date: 20130214
  Receipt Date: 20130510
  Transmission Date: 20140414
  Serious: Yes (Hospitalization)
  Sender: FDA-Public Use
  Company Number: ES-ELI_LILLY_AND_COMPANY-ES201302002104

PATIENT
  Age: 58 Year
  Sex: Male
  Weight: 110 kg

DRUGS (13)
  1. FORSTEO [Suspect]
     Indication: OSTEOPOROSIS
     Dosage: 20 UG, QD
     Route: 058
     Dates: start: 20121031
  2. GABAPENTINA [Concomitant]
     Indication: PAIN
     Dosage: 400 MG, QD
     Route: 048
  3. IBUPROFENO [Concomitant]
     Indication: PAIN
     Dosage: 1 DF, TID
     Route: 048
  4. HIDROMORFONA [Concomitant]
     Indication: PAIN
     Dosage: 1 DF, QD
     Route: 048
  5. ZYTRAM [Concomitant]
     Indication: PAIN
     Dosage: 150 MG, QD
     Route: 048
  6. PARACETAMOL [Concomitant]
     Indication: PAIN
     Dosage: 1 G, TID
     Route: 048
  7. DULOXETINE [Concomitant]
     Dosage: 90 MG, QD
     Route: 048
  8. NALTREXONA [Concomitant]
     Indication: ALCOHOL PROBLEM
     Dosage: 1 DF, QD
     Route: 048
  9. DIAZEPAM [Concomitant]
     Indication: INSOMNIA
     Dosage: 1 DF, QD
     Route: 048
  10. EBASTINA CINFA [Concomitant]
     Indication: HYPERSENSITIVITY
     Dosage: 1 DF, UNK
     Route: 048
  11. ENALAPRIL + HIDROCLOROTIAZIDA [Concomitant]
     Indication: BLOOD PRESSURE INCREASED
     Dosage: 1 DF, QD
     Route: 048
  12. OMEPRAZOL [Concomitant]
     Indication: GASTROOESOPHAGEAL REFLUX PROPHYLAXIS
     Dosage: 1 DF, QD
     Route: 048
  13. FLUVASTATIN [Concomitant]
     Indication: BLOOD CHOLESTEROL INCREASED
     Dosage: UNK, QD
     Route: 048

REACTIONS (2)
  - Drug interaction [Recovered/Resolved]
  - Injection site pain [Unknown]
